FAERS Safety Report 13487689 (Version 1)
Quarter: 2017Q2

REPORT INFORMATION
  Report Type: Spontaneous
  Country: US (occurrence: US)
  Receive Date: 20170426
  Receipt Date: 20170426
  Transmission Date: 20170830
  Serious: No
  Sender: FDA-Public Use
  Company Number: US-ALKERMES INC.-ALK-2016-003023

PATIENT
  Age: 58 Year
  Sex: Female
  Weight: 40.82 kg

DRUGS (4)
  1. OTHER THERAPEUTIC PRODUCTS [Concomitant]
     Active Substance: UNSPECIFIED INGREDIENT
     Indication: DEPRESSION
     Dosage: 1 DF, UNK
     Route: 065
  2. PROZAC [Concomitant]
     Active Substance: FLUOXETINE HYDROCHLORIDE
     Indication: PRODUCT USED FOR UNKNOWN INDICATION
     Dosage: 1 DF, UNK
     Route: 065
  3. VIVITROL [Suspect]
     Active Substance: NALTREXONE
     Indication: ALCOHOLISM
     Dosage: 380 MG, QMO
     Route: 030
     Dates: start: 201610
  4. POTASSIUM [Concomitant]
     Active Substance: POTASSIUM
     Indication: PRODUCT USED FOR UNKNOWN INDICATION
     Dosage: 1 DF, UNK
     Route: 065

REACTIONS (26)
  - Depression [Recovering/Resolving]
  - Injection site pain [Recovered/Resolved]
  - Injection site pruritus [Not Recovered/Not Resolved]
  - Back pain [Recovering/Resolving]
  - Lethargy [Recovering/Resolving]
  - Alcoholism [Unknown]
  - Drug administration error [Unknown]
  - Nausea [Recovering/Resolving]
  - Malaise [Unknown]
  - Decreased appetite [Unknown]
  - Injection site mass [Not Recovered/Not Resolved]
  - Injection site induration [Not Recovered/Not Resolved]
  - Somnolence [Unknown]
  - Apathy [Unknown]
  - Pain [Recovering/Resolving]
  - Drug effect decreased [Unknown]
  - Vomiting [Recovering/Resolving]
  - Injection site reaction [Not Recovered/Not Resolved]
  - Blood triglycerides increased [Unknown]
  - Pollakiuria [Recovering/Resolving]
  - Asthenia [Recovering/Resolving]
  - Nephrolithiasis [Recovered/Resolved]
  - Nicotine dependence [Unknown]
  - Influenza like illness [Unknown]
  - Fatigue [Recovering/Resolving]
  - Injection site warmth [Not Recovered/Not Resolved]

NARRATIVE: CASE EVENT DATE: 201610
